FAERS Safety Report 8875664 (Version 1)
Quarter: 2012Q4

REPORT INFORMATION
  Report Type: 
  Country: US (occurrence: US)
  Receive Date: 20121030
  Receipt Date: 20121030
  Transmission Date: 20130627
  Serious: Yes (Other)
  Sender: FDA-Public Use
  Company Number: CHPA2012US022359

PATIENT
  Age: 76 Year
  Sex: Female

DRUGS (2)
  1. MAALOX ANTACID/ANTIGAS MAX QDTABS ASST [Suspect]
     Indication: ABDOMINAL PAIN UPPER
     Dosage: 2 DF, PRN
     Route: 048
     Dates: start: 1957
  2. MAALOX ADV MAXIMUM STRENGTH ANTACID/ANTIGAS [Suspect]
     Indication: PAIN
     Dosage: 1 SWIG, PRN
     Route: 048
     Dates: start: 1957

REACTIONS (10)
  - Ulcer [Recovered/Resolved]
  - Sciatica [Not Recovered/Not Resolved]
  - Arthralgia [Recovered/Resolved]
  - Abdominal distension [Unknown]
  - Abdominal pain upper [Unknown]
  - Abdominal discomfort [Recovered/Resolved]
  - Pain [Unknown]
  - Stress [Recovered/Resolved]
  - Therapeutic response unexpected [Recovered/Resolved]
  - Off label use [Unknown]
